FAERS Safety Report 8357253-7 (Version None)
Quarter: 2012Q2

REPORT INFORMATION
  Report Type: 
  Country: None (occurrence: None)
  Receive Date: 20120514
  Receipt Date: 20120507
  Transmission Date: 20120825
  Serious: Yes (Other)
  Sender: FDA-Public Use
  Company Number: PHHY2012EC039285

PATIENT
  Sex: Female

DRUGS (1)
  1. EXFORGE HCT [Suspect]
     Indication: HYPERTENSION
     Dosage: 1 DF (160/10/25 MG), DAILY
     Route: 048
     Dates: start: 20111026

REACTIONS (2)
  - DENGUE FEVER [None]
  - URINARY TRACT INFECTION [None]
